FAERS Safety Report 8774006 (Version 2)
Quarter: 2012Q4

REPORT INFORMATION
  Report Type: Report from Study
  Country: TR (occurrence: TR)
  Receive Date: 20120908
  Receipt Date: 20120918
  Transmission Date: 20130627
  Serious: Yes (Death)
  Sender: FDA-Public Use
  Company Number: TR-ABBOTT-12P-161-0975823-00

PATIENT
  Sex: Female
  Weight: 73 kg

DRUGS (6)
  1. ZEMPLAR [Suspect]
     Indication: HYPERPARATHYROIDISM SECONDARY
     Route: 042
     Dates: start: 20120113, end: 20120504
  2. PHOS-EX [Concomitant]
     Indication: HYPERPHOSPHATAEMIA
     Route: 048
     Dates: start: 201009, end: 20120819
  3. ARENESP (DARBEPOIETINE) [Concomitant]
     Indication: ANAEMIA
     Route: 058
     Dates: start: 201009, end: 20120819
  4. BELOC ZOK [Concomitant]
     Indication: CARDIAC FAILURE
     Route: 048
     Dates: start: 201009, end: 20120819
  5. ISOPTIN [Concomitant]
     Indication: CARDIAC FAILURE
     Route: 048
     Dates: start: 201009, end: 20120819
  6. SINEPIN [Concomitant]
     Indication: HYPERTENSION
     Route: 048
     Dates: start: 201009, end: 20120819

REACTIONS (1)
  - Device related infection [Fatal]
